FAERS Safety Report 7377756-1 (Version None)
Quarter: 2011Q1

REPORT INFORMATION
  Report Type: 
  Country: None (occurrence: None)
  Receive Date: 20110328
  Receipt Date: 20110317
  Transmission Date: 20110831
  Serious: Yes (Hospitalization)
  Sender: FDA-Public Use
  Company Number: FR-JNJFOC-20110310717

PATIENT
  Sex: Male

DRUGS (7)
  1. MEDROL [Concomitant]
     Indication: BACK PAIN
     Dosage: 16 MG
     Route: 065
  2. LIPANTHYL [Concomitant]
     Indication: DYSLIPIDAEMIA
     Route: 065
  3. MEDROL [Concomitant]
     Route: 065
  4. ZALDIAR [Suspect]
     Indication: BACK PAIN
     Route: 048
  5. ZALDIAR [Suspect]
     Indication: PAIN
     Route: 048
  6. DEROXAT [Suspect]
     Indication: PRODUCT USED FOR UNKNOWN INDICATION
     Route: 048
  7. LEXOMIL [Concomitant]
     Route: 065

REACTIONS (4)
  - AMNESIA [None]
  - HALLUCINATION, AUDITORY [None]
  - HALLUCINATION, VISUAL [None]
  - ABNORMAL BEHAVIOUR [None]
